FAERS Safety Report 5662339-1 (Version None)
Quarter: 2008Q1

REPORT INFORMATION
  Report Type: 
  Country: None (occurrence: None)
  Receive Date: 20080312
  Receipt Date: 20080305
  Transmission Date: 20080703
  Serious: Yes (Other)
  Sender: FDA-Public Use
  Company Number: CA-PFIZER INC-2008021747

PATIENT
  Sex: Male

DRUGS (2)
  1. CELEBREX [Suspect]
     Indication: FIBROMYALGIA
     Route: 048
  2. TOPAMAX [Concomitant]
     Route: 048

REACTIONS (1)
  - HAEMOPTYSIS [None]
